FAERS Safety Report 7001169-5 (Version None)
Quarter: 2010Q3

REPORT INFORMATION
  Report Type: 
  Country: None (occurrence: None)
  Receive Date: 20100920
  Receipt Date: 20100701
  Transmission Date: 20110219
  Serious: No
  Sender: FDA-Public Use
  Company Number: US-ASTRAZENECA-2007UW27641

PATIENT
  Age: 14639 Day
  Sex: Male
  Weight: 96.6 kg

DRUGS (14)
  1. SEROQUEL [Suspect]
     Indication: ANXIETY
     Dosage: 25-600 MG
     Route: 048
     Dates: start: 19980330, end: 20050920
  2. SEROQUEL [Suspect]
     Indication: DEPRESSION
     Dosage: 25-600 MG
     Route: 048
     Dates: start: 19980330, end: 20050920
  3. SEROQUEL [Suspect]
     Indication: BIPOLAR I DISORDER
     Dosage: 25-600 MG
     Route: 048
     Dates: start: 19980330, end: 20050920
  4. SEROQUEL [Suspect]
     Route: 048
     Dates: start: 19980330, end: 20051018
  5. SEROQUEL [Suspect]
     Route: 048
     Dates: start: 19980330, end: 20051018
  6. SEROQUEL [Suspect]
     Route: 048
     Dates: start: 19980330, end: 20051018
  7. ZYPREXA [Suspect]
     Indication: BIPOLAR I DISORDER
     Dosage: 10 MG-20 MG
     Dates: start: 19981013
  8. ZYPREXA [Suspect]
     Dates: start: 20010426, end: 20060101
  9. LITHIUM [Concomitant]
     Dosage: 600 MG, EVERY NIGHT
     Dates: start: 20051221
  10. AVANDIA [Concomitant]
     Dosage: 4 MG, EVERY NIGHT
     Route: 048
     Dates: start: 20011115
  11. CAPTOPRIL [Concomitant]
     Route: 048
     Dates: start: 20071002
  12. RISPERDAL [Concomitant]
     Indication: BIPOLAR I DISORDER
     Dates: start: 20011114, end: 20050101
  13. ABILIFY [Concomitant]
  14. THORAZINE [Concomitant]

REACTIONS (2)
  - DIABETIC COMPLICATION [None]
  - TYPE 2 DIABETES MELLITUS [None]
